FAERS Safety Report 4766561-8 (Version None)
Quarter: 2005Q3

REPORT INFORMATION
  Report Type: 
  Country: None (occurrence: None)
  Receive Date: 20050908
  Receipt Date: 20050826
  Transmission Date: 20060218
  Serious: Yes (Other)
  Sender: FDA-Public Use
  Company Number: HQWYE194330AUG05

PATIENT
  Age: 81 Year
  Sex: Male
  Weight: 78.09 kg

DRUGS (5)
  1. CORDARONE [Suspect]
     Indication: ATRIAL FIBRILLATION
     Dosage: 200 MG 1X PER 1 DAY, ORAL
     Route: 048
     Dates: start: 19970101
  2. PROSCAR [Concomitant]
  3. LIPITOR [Concomitant]
  4. PROCARDIA XL [Concomitant]
  5. LOPRESSOR [Concomitant]

REACTIONS (3)
  - HYPOREFLEXIA [None]
  - PARKINSON'S DISEASE [None]
  - THERAPY NON-RESPONDER [None]
